FAERS Safety Report 22041882 (Version 2)
Quarter: 2023Q1

REPORT INFORMATION
  Report Type: Report from Study
  Country: US (occurrence: US)
  Receive Date: 20230227
  Receipt Date: 20230328
  Transmission Date: 20230418
  Serious: Yes (Hospitalization)
  Sender: FDA-Public Use
  Company Number: US-PFIZER INC-PV202300035064

PATIENT
  Age: 62 Year
  Sex: Female

DRUGS (20)
  1. BRAFTOVI [Suspect]
     Active Substance: ENCORAFENIB
     Indication: Papillary thyroid cancer
     Dosage: 180 DOSAGE FORM, EVERY 1 DAYS
     Route: 048
     Dates: start: 20230117
  2. MEKTOVI [Suspect]
     Active Substance: BINIMETINIB
     Indication: Papillary thyroid cancer
     Dosage: 180 DOSAGE FORM, EVERY 2 DAYS
     Route: 048
     Dates: start: 20230117
  3. SYNTHROID [Concomitant]
     Active Substance: LEVOTHYROXINE SODIUM
     Indication: Hypothyroidism
     Dosage: 137 UG, EVERY 1 DAYS
     Dates: start: 20220629
  4. VITAMIN D3 [Concomitant]
     Active Substance: CHOLECALCIFEROL
     Indication: Supplementation therapy
     Dosage: 25 UG, EVERY 1 DAYS
     Dates: start: 20220629
  5. VITAMINS NOS [Concomitant]
     Active Substance: VITAMINS
     Indication: Supplementation therapy
     Dosage: UNK, 1X/DAY (EVERY 1 DAYS)
     Dates: start: 20220629
  6. TELMISARTAN AND HYDROCHLOROTHIAZIDE [Concomitant]
     Active Substance: HYDROCHLOROTHIAZIDE\TELMISARTAN
     Indication: Hypertension
     Dosage: 40-12.5 MG QD, EVERY 1 DAYS
     Dates: start: 20220629
  7. MEGESTROL [Concomitant]
     Active Substance: MEGESTROL
     Indication: Supplementation therapy
     Dosage: 400 MG/10ML BID, 2/DAYS
     Dates: start: 20220630
  8. ATIVAN [Concomitant]
     Active Substance: LORAZEPAM
     Indication: Insomnia
     Dosage: 0.5 MG, AS NECESSARY
     Dates: start: 20220804
  9. VITAMIN D2 [Concomitant]
     Active Substance: ERGOCALCIFEROL
     Indication: Vitamin D deficiency
     Dosage: 1250 UG, EVERY 1 WEEKS
     Dates: start: 20220902
  10. QUETIAPINE [Concomitant]
     Active Substance: QUETIAPINE
     Indication: Depression
     Dosage: 25 MG, 3/DAYS
     Dates: start: 20220915
  11. LOSARTAN [Concomitant]
     Active Substance: LOSARTAN
     Indication: Hypertension
     Dosage: 50 MG, EVERY 1 DAYS
     Dates: start: 20221006
  12. PENTOXIFYLLINE [Concomitant]
     Active Substance: PENTOXIFYLLINE
     Indication: Lymphoedema
     Dosage: 400 MG, 3/DAYS
     Dates: start: 20221006
  13. POTASSIUM [Concomitant]
     Active Substance: POTASSIUM
     Indication: Hypokalaemia
     Dosage: 7 ML, EVERY 1 DAYS
     Dates: start: 20221007
  14. BENADRYL [Concomitant]
     Active Substance: DIPHENHYDRAMINE HYDROCHLORIDE
     Dosage: 12.5 MG/5 ML
     Dates: start: 20221103
  15. LIDOCAINE VISCOUS [Concomitant]
     Active Substance: LIDOCAINE HYDROCHLORIDE
     Dosage: 2 %
     Dates: start: 20221103
  16. MAALOX EXTRA STRENGTH [Concomitant]
     Indication: Supplementation therapy
     Dosage: 400-400-40 MG/5 ML
     Dates: start: 20221103
  17. NYSTATIN [Concomitant]
     Active Substance: NYSTATIN
     Dosage: 100000 IU/G
     Dates: start: 20221103
  18. ELIQUIS [Concomitant]
     Active Substance: APIXABAN
     Indication: Thrombosis
     Dosage: 5 MG, 2/DAYS
     Dates: start: 20221115
  19. MELOXICAM [Concomitant]
     Active Substance: MELOXICAM
     Indication: Pain in extremity
     Dosage: 15 MG, EVERY 1 DAYS
     Dates: start: 20221130
  20. DEXAMETHASONE [Concomitant]
     Active Substance: DEXAMETHASONE
     Dosage: 0.5 MG, EVERY 1 DAYS
     Dates: start: 20221201

REACTIONS (1)
  - Muscular weakness [Not Recovered/Not Resolved]

NARRATIVE: CASE EVENT DATE: 20230120
